FAERS Safety Report 17456268 (Version 2)
Quarter: 2021Q2

REPORT INFORMATION
  Report Type: Spontaneous
  Country: JP (occurrence: JP)
  Receive Date: 20200225
  Receipt Date: 20210402
  Transmission Date: 20210716
  Serious: Yes (Hospitalization)
  Sender: FDA-Public Use
  Company Number: JP-ELI_LILLY_AND_COMPANY-JP202002010032

PATIENT
  Age: 75 Year
  Sex: Male
  Weight: 58 kg

DRUGS (1)
  1. CYRAMZA [Suspect]
     Active Substance: RAMUCIRUMAB
     Indication: HEPATOCELLULAR CARCINOMA
     Dosage: 465.6 MG, OTHER
     Route: 041
     Dates: start: 20200210, end: 20200210

REACTIONS (7)
  - Pyrexia [Recovered/Resolved]
  - Malaise [Unknown]
  - C-reactive protein increased [Recovered/Resolved]
  - Hepatic enzyme increased [Recovered/Resolved]
  - Coma [Recovered/Resolved]
  - Blood bilirubin increased [Recovered/Resolved]
  - Nausea [Unknown]

NARRATIVE: CASE EVENT DATE: 20200218
